FAERS Safety Report 14806326 (Version 3)
Quarter: 2019Q1

REPORT INFORMATION
  Report Type: Report from Study
  Country: US (occurrence: US)
  Receive Date: 20180425
  Receipt Date: 20190129
  Transmission Date: 20190417
  Serious: Yes (Other)
  Sender: FDA-Public Use
  Company Number: PHHY2018US069222

PATIENT
  Age: 33 Year
  Sex: Female

DRUGS (1)
  1. GILENYA [Suspect]
     Active Substance: FINGOLIMOD HYDROCHLORIDE
     Indication: MULTIPLE SCLEROSIS
     Dosage: UNK, QD
     Route: 048

REACTIONS (11)
  - Multiple sclerosis [Unknown]
  - Central nervous system lesion [Unknown]
  - Fibrous histiocytoma [Unknown]
  - Ear discomfort [Unknown]
  - Melanocytic naevus [Unknown]
  - Micturition urgency [Unknown]
  - Back pain [Unknown]
  - Musculoskeletal pain [Unknown]
  - Condition aggravated [Unknown]
  - Pollakiuria [Unknown]
  - Papule [Unknown]

NARRATIVE: CASE EVENT DATE: 20150519
